FAERS Safety Report 17767587 (Version 2)
Quarter: 2020Q2

REPORT INFORMATION
  Report Type: Report from Study
  Country: IT (occurrence: IT)
  Receive Date: 20200511
  Receipt Date: 20200526
  Transmission Date: 20200714
  Serious: Yes (Other)
  Sender: FDA-Public Use
  Company Number: IT-MYLANLABS-2020M1045454

PATIENT
  Age: 75 Year
  Sex: Female
  Weight: 61 kg

DRUGS (19)
  1. ENVARSUS XR [Suspect]
     Active Substance: TACROLIMUS
     Dosage: 2.75 MG IN ALTERNANCE WITH 2 MG, QD
     Route: 048
     Dates: start: 20190327, end: 20190509
  2. CERTICAN [Suspect]
     Active Substance: EVEROLIMUS
     Dosage: 1.75 MILLIGRAM
     Route: 048
     Dates: start: 20190510, end: 20190730
  3. CERTICAN [Suspect]
     Active Substance: EVEROLIMUS
     Dosage: 1.5 MILLIGRAM
     Route: 048
     Dates: start: 20190804, end: 20190925
  4. TORVAST [Concomitant]
     Active Substance: ATORVASTATIN
     Indication: HYPERCHOLESTEROLAEMIA
     Dosage: 20 MG,DAILY
     Route: 065
     Dates: start: 20181213
  5. EVEROLIMUS. [Suspect]
     Active Substance: EVEROLIMUS
     Indication: PRODUCT USED FOR UNKNOWN INDICATION
     Dosage: 1 MG PLUS 1 MG
     Route: 065
     Dates: start: 20180921, end: 20190509
  6. CERTICAN [Suspect]
     Active Substance: EVEROLIMUS
     Indication: IMMUNOSUPPRESSANT DRUG THERAPY
     Dosage: 2 MG
     Route: 048
     Dates: start: 20180921, end: 20190509
  7. CERTICAN [Suspect]
     Active Substance: EVEROLIMUS
     Dosage: 1.5 MILLIGRAM, QD
     Route: 048
  8. EVEROLIMUS. [Suspect]
     Active Substance: EVEROLIMUS
     Dosage: 1 MG PLUS 0.75 MG IN ALTERNANCE WITH 0.75 MG + 0.75 MG, 1.625 MG
     Route: 065
     Dates: start: 20190731, end: 20190803
  9. EVEROLIMUS. [Suspect]
     Active Substance: EVEROLIMUS
     Dosage: 1 MG PLUS  0.75 MG
     Route: 065
     Dates: start: 20190804, end: 20190925
  10. ENVARSUS XR [Suspect]
     Active Substance: TACROLIMUS
     Dosage: 2 MILLIGRAM, QD
     Route: 048
     Dates: start: 20190510, end: 20190618
  11. ENVARSUS XR [Suspect]
     Active Substance: TACROLIMUS
     Dosage: 2 MILLIGRAM, QD
     Route: 048
     Dates: start: 20190731, end: 20190925
  12. CERTICAN [Suspect]
     Active Substance: EVEROLIMUS
     Dosage: 1.625 MG, QD
     Route: 048
     Dates: start: 20190731, end: 20190803
  13. AMLODIPINE [Concomitant]
     Active Substance: AMLODIPINE BESYLATE
     Indication: HYPERTENSION
     Dosage: 5 MG, DAILY
     Route: 065
     Dates: start: 20181213
  14. NEBIVOLOL. [Concomitant]
     Active Substance: NEBIVOLOL
     Indication: HYPERTENSION
     Dosage: 0.5 MG, QD
     Route: 065
     Dates: start: 20181213
  15. DIBASE [Concomitant]
     Active Substance: CHOLECALCIFEROL
     Indication: HYPOVITAMINOSIS
     Dosage: 1 DOSAGE FORM WEEKLY
     Route: 065
     Dates: start: 20181213
  16. ENVARSUS XR [Suspect]
     Active Substance: TACROLIMUS
     Dosage: 2 MG IN ALTERNANCE WITH 2.75 MG,QD
     Route: 048
     Dates: start: 20190619, end: 20190730
  17. MEDROL [Concomitant]
     Active Substance: METHYLPREDNISOLONE
     Indication: PRODUCT USED FOR UNKNOWN INDICATION
     Dosage: 4 MG, QD
     Route: 065
     Dates: start: 20181122
  18. EVEROLIMUS. [Suspect]
     Active Substance: EVEROLIMUS
     Dosage: 1 MG PLUS  0.75 MG
     Route: 065
     Dates: start: 20190510, end: 20190730
  19. ENVARSUS XR [Suspect]
     Active Substance: TACROLIMUS
     Indication: IMMUNOSUPPRESSANT DRUG THERAPY
     Dosage: 2 MILLIGRAM, QD
     Route: 048
     Dates: start: 20181109, end: 20190326

REACTIONS (1)
  - Erysipelas [Recovered/Resolved]

NARRATIVE: CASE EVENT DATE: 20190801
